FAERS Safety Report 20489440 (Version 1)
Quarter: 2022Q1

REPORT INFORMATION
  Report Type: Spontaneous
  Country: IN (occurrence: IN)
  Receive Date: 20220218
  Receipt Date: 20220218
  Transmission Date: 20220424
  Serious: Yes (Other)
  Sender: FDA-Public Use
  Company Number: IN-PFIZER INC-2021548414

PATIENT
  Age: 74 Year
  Sex: Female

DRUGS (5)
  1. PALBOCICLIB [Suspect]
     Active Substance: PALBOCICLIB
     Indication: Breast cancer metastatic
     Dosage: 100 MG, CYCLIC (OD X 3 WK ON 1 WK OFF/6 MONTHS)
     Route: 048
     Dates: start: 20210323
  2. LETROZOLE [Concomitant]
     Active Substance: LETROZOLE
     Dosage: 2.5 MG, 1X/DAY (X6 MTH)
     Dates: start: 202103
  3. GABAPIN ME [Concomitant]
     Dosage: UNK, 2X/WEEK
  4. FLEXON MR [Concomitant]
     Dosage: UNK
  5. LEVOCETIRIZINE DIHYDROCHLORIDE\MONTELUKAST SODIUM [Concomitant]
     Active Substance: LEVOCETIRIZINE DIHYDROCHLORIDE\MONTELUKAST SODIUM
     Dosage: UNK

REACTIONS (2)
  - Diabetes mellitus [Unknown]
  - Blood glucose increased [Unknown]

NARRATIVE: CASE EVENT DATE: 20211019
